FAERS Safety Report 13502637 (Version 1)
Quarter: 2017Q2

REPORT INFORMATION
  Report Type: Spontaneous
  Country: US (occurrence: US)
  Receive Date: 20170501
  Receipt Date: 20170501
  Transmission Date: 20170830
  Serious: Yes (Other)
  Sender: FDA-Public Use
  Company Number: None

PATIENT
  Age: 84 Year
  Sex: Female
  Weight: 69.75 kg

DRUGS (4)
  1. MULTIVITAMIN [Concomitant]
     Active Substance: VITAMINS
  2. REFRESH PLUS [Suspect]
     Active Substance: CARBOXYMETHYLCELLULOSE SODIUM
     Indication: DRY EYE
     Dosage: QUANTITY:0.01 OUNCE(S);?
     Route: 047
  3. VALSARTAN. [Concomitant]
     Active Substance: VALSARTAN
  4. NAPROSYN [Concomitant]
     Active Substance: NAPROXEN

REACTIONS (5)
  - Eye haemorrhage [None]
  - Foreign body in eye [None]
  - Eye injury [None]
  - Eye pain [None]
  - Liquid product physical issue [None]

NARRATIVE: CASE EVENT DATE: 20170424
